FAERS Safety Report 11723290 (Version 7)
Quarter: 2017Q1

REPORT INFORMATION
  Report Type: Spontaneous
  Country: US (occurrence: US)
  Receive Date: 20151111
  Receipt Date: 20170111
  Transmission Date: 20170428
  Serious: Yes (Death, Congenital Anomaly, Other)
  Sender: FDA-Public Use
  Company Number: PHEH2015US023228

PATIENT
  Sex: Male

DRUGS (3)
  1. ONDANSETRON HYDROCHLORIDE. [Suspect]
     Active Substance: ONDANSETRON HYDROCHLORIDE
     Indication: FOETAL EXPOSURE DURING PREGNANCY
     Dosage: UNK
     Route: 064
  2. ONDANSETRON. [Suspect]
     Active Substance: ONDANSETRON
     Indication: FOETAL EXPOSURE DURING PREGNANCY
     Dosage: MOTHER^S FREQUENCY: PRN (AS NEEDED)
     Route: 064
  3. ZOFRAN [Suspect]
     Active Substance: ONDANSETRON HYDROCHLORIDE
     Indication: FOETAL EXPOSURE DURING PREGNANCY
     Dosage: UNK
     Route: 064

REACTIONS (12)
  - Congenital anomaly [Unknown]
  - Injury [Unknown]
  - Multiple congenital abnormalities [Unknown]
  - Emotional distress [Unknown]
  - Hypoplastic left heart syndrome [Unknown]
  - Pain [Unknown]
  - Anhedonia [Unknown]
  - Cardiac failure [Fatal]
  - Heart disease congenital [Unknown]
  - Anxiety [Unknown]
  - Multiple cardiac defects [Fatal]
  - Foetal exposure during pregnancy [Unknown]
